FAERS Safety Report 24441637 (Version 2)
Quarter: 2024Q4

REPORT INFORMATION
  Report Type: Report from Study
  Country: AR (occurrence: AR)
  Receive Date: 20241016
  Receipt Date: 20241017
  Transmission Date: 20250115
  Serious: No
  Sender: ROCHE
  Company Number: AR-ROCHE-3505609

PATIENT
  Age: 7 Year
  Sex: Male

DRUGS (1)
  1. HEMLIBRA [Suspect]
     Active Substance: EMICIZUMAB-KXWH
     Indication: Factor VIII deficiency
     Dosage: DOSE AND FREQUENCY WERE NOT REPORTED
     Route: 058
     Dates: start: 20210115

REACTIONS (1)
  - Arthralgia [Unknown]
